FAERS Safety Report 10971752 (Version 1)
Quarter: 2015Q1

REPORT INFORMATION
  Report Type: Spontaneous
  Country: None (occurrence: None)
  Receive Date: 20150330
  Receipt Date: 20150330
  Transmission Date: 20150721
  Serious: Yes (Other)
  Sender: FDA-Public Use
  Company Number: None

PATIENT
  Age: 43 Year
  Sex: Female
  Weight: 56.7 kg

DRUGS (12)
  1. LEVOFLOXACIN. [Suspect]
     Active Substance: LEVOFLOXACIN
     Indication: PNEUMONIA
     Dosage: 1, ONCE DAILY, TAKEN BY MOUTH
     Route: 048
     Dates: start: 20150306, end: 20150310
  2. VITAMINS [Concomitant]
     Active Substance: VITAMINS
  3. GLUCOSAMINE?? CHONDROITIN [Concomitant]
  4. LIVER DETOX TEA [Concomitant]
  5. ADRENAL SUPPLEMENTS [Concomitant]
  6. E [Concomitant]
  7. VITAMIN B COMPLEX [Concomitant]
     Active Substance: CYANOCOBALAMIN\DEXPANTHENOL\NIACINAMIDE\PYRIDOXINE HYDROCHLORIDE\RIBOFLAVIN 5^-PHOSPHATE SODIUM\THIAMINE HYDROCHLORIDE\VITAMIN B COMPLEX
  8. C [Concomitant]
  9. MULTIVITAMIN [Concomitant]
     Active Substance: VITAMINS
  10. D3 [Concomitant]
     Active Substance: 25-HYDROXYCHOLECALCIFEROL, 5-TRANS-
  11. FISH OIL [Concomitant]
     Active Substance: FISH OIL
  12. MAGNESIUM [Concomitant]
     Active Substance: MAGNESIUM

REACTIONS (7)
  - Musculoskeletal pain [None]
  - Nightmare [None]
  - Cardiac flutter [None]
  - Arthralgia [None]
  - Dyspnoea [None]
  - Fatigue [None]
  - Cold sweat [None]

NARRATIVE: CASE EVENT DATE: 20150307
